FAERS Safety Report 24044691 (Version 1)
Quarter: 2024Q3

REPORT INFORMATION
  Report Type: Spontaneous
  Country: ZA (occurrence: None)
  Receive Date: 20240703
  Receipt Date: 20240703
  Transmission Date: 20241016
  Serious: Yes (Hospitalization)
  Sender: ASTRAZENECA
  Company Number: 2024A149256

PATIENT
  Age: 64 Year
  Sex: Female

DRUGS (5)
  1. BUDESONIDE\FORMOTEROL [Suspect]
     Active Substance: BUDESONIDE\FORMOTEROL
     Indication: Asthma
     Dosage: 60 UG/INHAL, UNKNOWN UNKNOWN
     Route: 055
  2. DYNA-INDAPAMIDE SR [Concomitant]
     Indication: Hypertension
     Route: 048
  3. SIMVASTATIN [Concomitant]
     Active Substance: SIMVASTATIN
     Indication: Blood cholesterol
     Route: 048
  4. TOPRAZ [Concomitant]
     Indication: Asthma
     Route: 048
  5. ADCO-TALOMIL [Concomitant]
     Indication: Psychiatric care
     Route: 048

REACTIONS (1)
  - Asthma [Unknown]
